FAERS Safety Report 6260469-7 (Version None)
Quarter: 2009Q3

REPORT INFORMATION
  Report Type: 
  Country: None (occurrence: None)
  Receive Date: 20090706
  Receipt Date: 20090625
  Transmission Date: 20100115
  Serious: Yes (Hospitalization)
  Sender: FDA-Public Use
  Company Number: 2008SP005663

PATIENT
  Age: 29 Year
  Sex: Male
  Weight: 56 kg

DRUGS (3)
  1. PEG-INTRON [Suspect]
     Indication: HEPATITIS B
     Dosage: 80 MCG; QW; SC, 80 MCG; QW; SC
     Route: 058
     Dates: start: 20080122, end: 20080318
  2. PEG-INTRON [Suspect]
     Indication: HEPATITIS B
     Dosage: 80 MCG; QW; SC, 80 MCG; QW; SC
     Route: 058
     Dates: start: 20080326, end: 20080703
  3. PEG-INTRON [Suspect]

REACTIONS (4)
  - DECREASED APPETITE [None]
  - DIZZINESS [None]
  - FATIGUE [None]
  - LIVER INJURY [None]
